FAERS Safety Report 11493276 (Version 1)
Quarter: 2015Q3

REPORT INFORMATION
  Report Type: Spontaneous
  Country: US (occurrence: US)
  Receive Date: 20150911
  Receipt Date: 20150911
  Transmission Date: 20151125
  Serious: No
  Sender: FDA-Public Use
  Company Number: US-ROCHE-1015619

PATIENT
  Sex: Female

DRUGS (4)
  1. RIBAVIRIN. [Suspect]
     Active Substance: RIBAVIRIN
     Indication: HEPATITIS C
     Dosage: IN DIVIDED DOSES
     Route: 065
     Dates: start: 20111120
  2. INCIVEK [Suspect]
     Active Substance: TELAPREVIR
     Indication: HEPATITIS C
     Route: 065
     Dates: start: 20111120
  3. PEGASYS [Suspect]
     Active Substance: PEGINTERFERON ALFA-2A
     Dosage: DOSE DECREASED
     Route: 065
  4. PEGASYS [Suspect]
     Active Substance: PEGINTERFERON ALFA-2A
     Indication: HEPATITIS C
     Route: 065
     Dates: start: 20111120

REACTIONS (6)
  - Skin burning sensation [Unknown]
  - Contusion [Unknown]
  - Diarrhoea [Unknown]
  - Anorectal discomfort [Unknown]
  - Pruritus [Unknown]
  - Platelet count decreased [Unknown]
